FAERS Safety Report 17827314 (Version 2)
Quarter: 2020Q3

REPORT INFORMATION
  Report Type: Spontaneous
  Country: BN (occurrence: BN)
  Receive Date: 20200527
  Receipt Date: 20200903
  Transmission Date: 20201102
  Serious: Yes (Other)
  Sender: FDA-Public Use
  Company Number: BN-SUN PHARMACEUTICAL INDUSTRIES LTD-2020R1-247483

PATIENT
  Age: 60 Year
  Sex: Female

DRUGS (1)
  1. HYDROXYCHLOROQUINE [Suspect]
     Active Substance: HYDROXYCHLOROQUINE
     Indication: COVID-19
     Dosage: UNK
     Route: 065

REACTIONS (3)
  - Off label use [Unknown]
  - Electrocardiogram QT prolonged [Recovered/Resolved]
  - Bundle branch block right [Recovered/Resolved]
